FAERS Safety Report 10398824 (Version 1)
Quarter: 2014Q3

REPORT INFORMATION
  Report Type: Spontaneous
  Country: US (occurrence: None)
  Receive Date: 20140818
  Receipt Date: 20140818
  Transmission Date: 20150326
  Serious: Yes (Disabling)
  Sender: FDA-Public Use
  Company Number: None

PATIENT
  Age: 35 Year
  Sex: Female
  Weight: 72.58 kg

DRUGS (3)
  1. MAGNESIUM SUPPLEMENTS [Concomitant]
  2. ANGSTROM MAGNESIUM SUPPLEMENTS [Concomitant]
  3. CIPROFLOXACIN. [Suspect]
     Active Substance: CIPROFLOXACIN
     Indication: URINARY TRACT INFECTION
     Route: 048
     Dates: start: 20140805, end: 20140806

REACTIONS (5)
  - Paraesthesia [None]
  - Hypoaesthesia [None]
  - Arthralgia [None]
  - Unevaluable event [None]
  - Muscle twitching [None]

NARRATIVE: CASE EVENT DATE: 20140807
